FAERS Safety Report 7003041-3 (Version None)
Quarter: 2010Q3

REPORT INFORMATION
  Report Type: 
  Country: None (occurrence: None)
  Receive Date: 20100920
  Receipt Date: 20100323
  Transmission Date: 20110219
  Serious: No
  Sender: FDA-Public Use
  Company Number: US-ASTRAZENECA-2010SE12899

PATIENT
  Age: 60 Year
  Sex: Female
  Weight: 70.8 kg

DRUGS (9)
  1. SEROQUEL XR [Suspect]
     Indication: BIPOLAR DISORDER
     Route: 048
  2. SEROQUEL XR [Suspect]
     Route: 048
     Dates: start: 20100313
  3. LAMICTAL [Concomitant]
  4. HYOSCYAMINE [Concomitant]
     Indication: BLADDER DISORDER
  5. DETROL LA [Concomitant]
     Indication: BLADDER DISORDER
  6. MOBIC [Concomitant]
     Indication: PAIN
  7. SYNTHROID [Concomitant]
     Indication: HYPOTHYROIDISM
  8. METHADONE HCL [Concomitant]
     Indication: PAIN
  9. PERCOCET [Concomitant]
     Indication: BREAKTHROUGH PAIN

REACTIONS (3)
  - HYPERSOMNIA [None]
  - MEDICATION ERROR [None]
  - SOMNOLENCE [None]
